FAERS Safety Report 8427313-0 (Version None)
Quarter: 2012Q2

REPORT INFORMATION
  Report Type: 
  Country: None (occurrence: None)
  Receive Date: 20120611
  Receipt Date: 20120606
  Transmission Date: 20120825
  Serious: Yes (Other)
  Sender: FDA-Public Use
  Company Number: US-PFIZER INC-2012094193

PATIENT
  Sex: Female
  Weight: 91 kg

DRUGS (7)
  1. SOMA [Concomitant]
     Indication: MUSCLE SPASMS
     Dosage: UNK
  2. PROZAC [Concomitant]
     Dosage: UNK
  3. XANAX [Suspect]
     Indication: ANXIETY
     Dosage: 0.5 MG, 2X/DAY
     Route: 048
     Dates: start: 19960101
  4. XANAX [Suspect]
     Indication: DEPRESSION
  5. LIPITOR [Suspect]
     Indication: BLOOD CHOLESTEROL INCREASED
     Dosage: 40 MG, 1X/DAY
     Route: 048
     Dates: start: 19960101
  6. SYMBYAX [Concomitant]
     Dosage: UNK
  7. AMBIEN [Concomitant]
     Indication: SLEEP DISORDER
     Dosage: UNK

REACTIONS (2)
  - ROAD TRAFFIC ACCIDENT [None]
  - INJURY [None]
